FAERS Safety Report 9470703 (Version 1)
Quarter: 2013Q3

REPORT INFORMATION
  Report Type: Spontaneous
  Country: US (occurrence: US)
  Receive Date: 20130822
  Receipt Date: 20130822
  Transmission Date: 20140515
  Serious: No
  Sender: FDA-Public Use
  Company Number: US-PFIZER INC-2013241825

PATIENT
  Age: 52 Year
  Sex: Female
  Weight: 72.56 kg

DRUGS (9)
  1. NEURONTIN [Suspect]
     Indication: FIBROMYALGIA
     Dosage: 400 MG, 1X/DAY AT NIGHT
  2. NEURONTIN [Suspect]
     Indication: INSOMNIA
  3. NEURONTIN [Suspect]
     Indication: FIBROMYALGIA
     Dosage: 600MG TABLET IN MORNING AND 600MG TABLET WITH 400MG CAPSULE AT NIGHT TO MAKE TOTAL DOSE OF 1000MG
  4. NEURONTIN [Suspect]
     Indication: INSOMNIA
  5. REMERON [Concomitant]
     Indication: DEPRESSION
     Dosage: UNK
  6. SIMVASTATIN [Concomitant]
     Indication: BLOOD CHOLESTEROL INCREASED
     Dosage: UNK
  7. LEVOTHYROXINE [Concomitant]
     Indication: THYROID DISORDER
     Dosage: UNK
  8. ATIVAN [Concomitant]
     Dosage: UNK, 1X/DAY
  9. DOXEPIN [Concomitant]
     Indication: INSOMNIA
     Dosage: UNK

REACTIONS (4)
  - Off label use [Unknown]
  - Myalgia [Not Recovered/Not Resolved]
  - Insomnia [Not Recovered/Not Resolved]
  - Muscle spasms [Not Recovered/Not Resolved]
